FAERS Safety Report 9523228 (Version 1)
Quarter: 2013Q3

REPORT INFORMATION
  Report Type: Spontaneous
  Country: CA (occurrence: CA)
  Receive Date: 20130913
  Receipt Date: 20130913
  Transmission Date: 20140515
  Serious: Yes (Other)
  Sender: FDA-Public Use
  Company Number: CA-ASTRAZENECA-2013SE67890

PATIENT
  Sex: Female

DRUGS (4)
  1. ARIMIDEX [Suspect]
     Route: 048
  2. ARIMIDEX [Suspect]
     Route: 048
  3. TAMOXIFEN [Suspect]
     Route: 048
  4. LETROZOLE [Suspect]
     Route: 065

REACTIONS (2)
  - Breast cancer female [Unknown]
  - Malignant neoplasm progression [Unknown]
